FAERS Safety Report 10253770 (Version 8)
Quarter: 2015Q3

REPORT INFORMATION
  Report Type: Report from Study
  Country: US (occurrence: US)
  Receive Date: 20140623
  Receipt Date: 20150714
  Transmission Date: 20151125
  Serious: Yes (Hospitalization, Other)
  Sender: FDA-Public Use
  Company Number: US-SA-2014SA054819

PATIENT
  Age: 62 Year
  Sex: Female

DRUGS (4)
  1. AUBAGIO [Suspect]
     Active Substance: TERIFLUNOMIDE
     Indication: MULTIPLE SCLEROSIS
     Route: 048
     Dates: start: 20140404
  2. AUBAGIO [Suspect]
     Active Substance: TERIFLUNOMIDE
     Indication: MULTIPLE SCLEROSIS
     Route: 048
     Dates: end: 201411
  3. AUBAGIO [Suspect]
     Active Substance: TERIFLUNOMIDE
     Indication: MULTIPLE SCLEROSIS
     Route: 048
     Dates: start: 2015, end: 20150401
  4. AUBAGIO [Suspect]
     Active Substance: TERIFLUNOMIDE
     Indication: MULTIPLE SCLEROSIS
     Route: 048
     Dates: end: 201412

REACTIONS (14)
  - Eye haemorrhage [Unknown]
  - Coronary artery disease [Recovering/Resolving]
  - Headache [Unknown]
  - Cardiac disorder [Unknown]
  - Blindness [Recovering/Resolving]
  - Bronchitis [Recovering/Resolving]
  - Drug dose omission [Unknown]
  - Vomiting [Unknown]
  - Diarrhoea [Recovering/Resolving]
  - Activities of daily living impaired [Recovering/Resolving]
  - Myalgia [Unknown]
  - Nausea [Unknown]
  - Influenza [Recovering/Resolving]
  - Asthenia [Recovering/Resolving]

NARRATIVE: CASE EVENT DATE: 2014
